FAERS Safety Report 14782954 (Version 1)
Quarter: 2018Q2

REPORT INFORMATION
  Report Type: Spontaneous
  Country: US (occurrence: US)
  Receive Date: 20180412
  Receipt Date: 20180412
  Transmission Date: 20180711
  Serious: Yes (Hospitalization)
  Sender: FDA-Public Use
  Company Number: None

PATIENT
  Age: 37 Year
  Sex: Female
  Weight: 53.5 kg

DRUGS (1)
  1. OMNIPAQUE [Suspect]
     Active Substance: IOHEXOL
     Indication: COMPUTERISED TOMOGRAM ABDOMEN ABNORMAL
     Dosage: ?          OTHER FREQUENCY:X1;?
     Route: 048
     Dates: start: 20180324, end: 20180324

REACTIONS (6)
  - Pruritus [None]
  - Dyspnoea [None]
  - Urticaria [None]
  - Chest discomfort [None]
  - Food allergy [None]
  - Respiratory distress [None]

NARRATIVE: CASE EVENT DATE: 20180324
